FAERS Safety Report 8283652-8 (Version None)
Quarter: 2012Q2

REPORT INFORMATION
  Report Type: 
  Country: None (occurrence: None)
  Receive Date: 20120413
  Receipt Date: 20120409
  Transmission Date: 20120825
  Serious: Yes (Other)
  Sender: FDA-Public Use
  Company Number: US-ABBOTT-12P-163-0923964-00

PATIENT
  Age: 64 Year
  Sex: Female

DRUGS (8)
  1. METHOTREXATE [Suspect]
     Indication: PRODUCT USED FOR UNKNOWN INDICATION
     Dates: end: 20120301
  2. ZOLOFT [Concomitant]
     Indication: DEPRESSION
  3. LIPITOR [Concomitant]
     Indication: BLOOD CHOLESTEROL INCREASED
  4. VIT B [Concomitant]
     Indication: PRODUCT USED FOR UNKNOWN INDICATION
  5. ATENOLOL [Concomitant]
     Indication: HYPERTENSION
  6. SYNTHROID [Concomitant]
     Indication: HYPOTHYROIDISM
  7. VIT D SUPPLEMENT [Concomitant]
     Indication: PRODUCT USED FOR UNKNOWN INDICATION
  8. HUMIRA [Suspect]
     Indication: RHEUMATOID ARTHRITIS
     Dates: start: 20111201, end: 20120305

REACTIONS (13)
  - DYSPNOEA [None]
  - HEPATIC ENZYME INCREASED [None]
  - CHILLS [None]
  - DELUSIONAL PERCEPTION [None]
  - RED BLOOD CELL SEDIMENTATION RATE ABNORMAL [None]
  - THINKING ABNORMAL [None]
  - CARDIAC FAILURE [None]
  - DRUG INEFFECTIVE [None]
  - HYPERHIDROSIS [None]
  - HYPOPHAGIA [None]
  - HAEMOPTYSIS [None]
  - DYSPNOEA EXERTIONAL [None]
  - ANXIETY [None]
